FAERS Safety Report 10080656 (Version 1)
Quarter: 2014Q2

REPORT INFORMATION
  Report Type: Spontaneous
  Country: US (occurrence: US)
  Receive Date: 20140416
  Receipt Date: 20140416
  Transmission Date: 20141212
  Serious: Yes (Disabling)
  Sender: FDA-Public Use
  Company Number: US-AMGEN INC.-USASP2014026982

PATIENT
  Age: 65 Year
  Sex: Female
  Weight: 111.57 kg

DRUGS (1)
  1. ENBREL [Suspect]
     Indication: RHEUMATOID ARTHRITIS
     Dosage: 50 MG, 2 TIMES/WK
     Route: 058
     Dates: start: 20130501, end: 20131101

REACTIONS (2)
  - Alopecia [Recovering/Resolving]
  - Weight increased [Recovering/Resolving]
